FAERS Safety Report 4374629-3 (Version None)
Quarter: 2004Q2

REPORT INFORMATION
  Report Type: 
  Country: None (occurrence: None)
  Receive Date: 20040604
  Receipt Date: 20040525
  Transmission Date: 20050107
  Serious: Yes (Other)
  Sender: FDA-Public Use
  Company Number: 2004215461US

PATIENT
  Age: 70 Year
  Sex: Male

DRUGS (4)
  1. HEPARIN SODIUM INJECTION [Suspect]
     Dosage: IV
     Route: 042
  2. APROTININ [Suspect]
  3. DANAPAROID (DANAPAROID) [Concomitant]
  4. WARFARIN SODIUM [Concomitant]

REACTIONS (4)
  - BLOOD PRESSURE SYSTOLIC DECREASED [None]
  - HEPARIN-INDUCED THROMBOCYTOPENIA [None]
  - TRANSPLANT [None]
  - VENTRICULAR TACHYCARDIA [None]
